FAERS Safety Report 13094518 (Version 2)
Quarter: 2017Q3

REPORT INFORMATION
  Report Type: Report from Study
  Country: None (occurrence: BR)
  Receive Date: 20170106
  Receipt Date: 20170802
  Transmission Date: 20171127
  Serious: Yes (Other)
  Sender: FDA-Public Use
  Company Number: BR-ABBVIE-15K-020-1494998-00

PATIENT
  Sex: Female
  Weight: 68 kg

DRUGS (6)
  1. HUMIRA [Suspect]
     Active Substance: ADALIMUMAB
     Indication: RHEUMATOID ARTHRITIS
     Route: 058
     Dates: start: 20151007, end: 20151021
  2. MICARDIS [Concomitant]
     Active Substance: TELMISARTAN
     Indication: HYPERTENSION
     Route: 048
     Dates: start: 2009
  3. METHOTREXATE. [Concomitant]
     Active Substance: METHOTREXATE
     Indication: BONE DISORDER
     Route: 048
     Dates: start: 2010
  4. FORASEQ [Concomitant]
     Active Substance: BUDESONIDE\FORMOTEROL FUMARATE
     Indication: ASTHMA
  5. HUMIRA [Suspect]
     Active Substance: ADALIMUMAB
     Route: 058
  6. FOLIC ACID. [Concomitant]
     Active Substance: FOLIC ACID
     Indication: BONE DISORDER
     Route: 048
     Dates: start: 2010

REACTIONS (8)
  - Erythema [Unknown]
  - Peripheral swelling [Unknown]
  - Burning sensation [Unknown]
  - Pain in extremity [Unknown]
  - Muscular weakness [Not Recovered/Not Resolved]
  - Mobility decreased [Unknown]
  - Device dislocation [Recovered/Resolved]
  - Gait disturbance [Not Recovered/Not Resolved]

NARRATIVE: CASE EVENT DATE: 2015
